FAERS Safety Report 4771006-8 (Version None)
Quarter: 2005Q3

REPORT INFORMATION
  Report Type: 
  Country: None (occurrence: None)
  Receive Date: 20050914
  Receipt Date: 20050830
  Transmission Date: 20060218
  Serious: Yes (Life-Threatening, Hospitalization)
  Sender: FDA-Public Use
  Company Number: DEU-2005-0001661

PATIENT
  Sex: Male

DRUGS (2)
  1. MORPHINE SULFATE INJ [Suspect]
     Indication: INTENTIONAL MISUSE
     Dosage: 400 MG, SINGLE, INTRAMUSCULAR
     Route: 030
     Dates: start: 20050623, end: 20050623
  2. MORPHINE SULFATE [Suspect]
     Indication: PAIN IN EXTREMITY
     Dosage: 10 MG, BID, ORAL
     Route: 048
     Dates: end: 20050101

REACTIONS (14)
  - ACUTE ABDOMEN [None]
  - ALANINE AMINOTRANSFERASE INCREASED [None]
  - ASPARTATE AMINOTRANSFERASE INCREASED [None]
  - BLOOD CREATINE PHOSPHOKINASE MB INCREASED [None]
  - BLOOD UREA INCREASED [None]
  - CHOLECYSTITIS [None]
  - DELIRIUM [None]
  - DRUG WITHDRAWAL SYNDROME [None]
  - GALLBLADDER PERFORATION [None]
  - INTENTIONAL MISUSE [None]
  - PERITONITIS [None]
  - SUBILEUS [None]
  - SUICIDE ATTEMPT [None]
  - WHITE BLOOD CELL COUNT INCREASED [None]
